APPROVED DRUG PRODUCT: ANDROGEL
Active Ingredient: TESTOSTERONE
Strength: 1.62% (40.5MG/2.5GM PACKET) **Federal Register determination that product was not discontinued or withdrawn for safety or effectiveness reasons**
Dosage Form/Route: GEL;TRANSDERMAL
Application: N022309 | Product #003 | TE Code: AB2
Applicant: BESINS HEALTHCARE IRELAND LTD
Approved: Sep 7, 2012 | RLD: Yes | RS: No | Type: RX

PATENTS:
Patent 8741881 | Expires: Oct 12, 2026
Patent 8466138 | Expires: Oct 12, 2026
Patent 8466137 | Expires: Oct 12, 2026
Patent 8754070 | Expires: Oct 12, 2026
Patent 8729057 | Expires: Oct 12, 2026
Patent 8759329 | Expires: Oct 12, 2026
Patent 8486925 | Expires: Oct 12, 2026
Patent 8466136 | Expires: Oct 12, 2026